FAERS Safety Report 24228069 (Version 1)
Quarter: 2024Q3

REPORT INFORMATION
  Report Type: Spontaneous
  Country: CH (occurrence: CH)
  Receive Date: 20240820
  Receipt Date: 20240820
  Transmission Date: 20241016
  Serious: Yes (Hospitalization, Other)
  Sender: PFIZER
  Company Number: None

PATIENT
  Age: 81 Year
  Sex: Male
  Weight: 69.3 kg

DRUGS (12)
  1. ALDACTONE [Interacting]
     Active Substance: SPIRONOLACTONE
     Dosage: 12.5 MG, 1X/DAY
     Route: 048
     Dates: start: 2019, end: 20240716
  2. ALDACTONE [Interacting]
     Active Substance: SPIRONOLACTONE
     Dosage: 12.5 MG, 1X/DAY
     Route: 048
     Dates: start: 20240719, end: 20240722
  3. CANAGLIFLOZIN [Interacting]
     Active Substance: CANAGLIFLOZIN
     Dosage: 100 MG, 1X/DAY
     Route: 048
  4. NEXIUM [Suspect]
     Active Substance: ESOMEPRAZOLE MAGNESIUM
     Dosage: 20 MG, 1X/DAY
     Route: 048
     Dates: start: 2019, end: 20240716
  5. NEXIUM [Suspect]
     Active Substance: ESOMEPRAZOLE MAGNESIUM
     Dosage: 20 MG
     Route: 048
     Dates: start: 20240718, end: 20240718
  6. TORSEMIDE [Suspect]
     Active Substance: TORSEMIDE
     Dosage: 20 MG, 1X/DAY
     Route: 048
     Dates: start: 2022, end: 20240714
  7. TORSEMIDE [Suspect]
     Active Substance: TORSEMIDE
     Dosage: 20 MG, 1X/DAY
     Route: 048
     Dates: start: 20240718
  8. ENTRESTO [Interacting]
     Active Substance: SACUBITRIL\VALSARTAN
     Dosage: 3 DF, 3X/DAY 1-0-2-0
     Route: 048
  9. ALLOPURINOL [Concomitant]
     Active Substance: ALLOPURINOL
     Dosage: 100 MG, 2X/DAY
     Route: 048
  10. ELIQUIS [Concomitant]
     Active Substance: APIXABAN
     Dosage: 2.5 MG, 2X/DAY
     Route: 048
  11. ATORVASTATIN [Concomitant]
     Active Substance: ATORVASTATIN
     Dosage: 40 MG, 1X/DAY
     Route: 048
  12. METOPROLOL AXAPHARM [Concomitant]
     Dosage: 150 MG, 1X/DAY, 1-0-0.5-0
     Route: 048

REACTIONS (8)
  - Hypomagnesaemia [Recovered/Resolved]
  - Hyperkalaemia [Recovering/Resolving]
  - Hypocalcaemia [Unknown]
  - Vitamin D deficiency [Unknown]
  - Hyperparathyroidism secondary [Unknown]
  - Mitral valve incompetence [Unknown]
  - Tricuspid valve incompetence [Unknown]
  - Drug interaction [Unknown]

NARRATIVE: CASE EVENT DATE: 20240701
